FAERS Safety Report 10064303 (Version 3)
Quarter: 2014Q3

REPORT INFORMATION
  Report Type: Spontaneous
  Country: US (occurrence: US)
  Receive Date: 20140408
  Receipt Date: 20140701
  Transmission Date: 20150326
  Serious: Yes (Disabling)
  Sender: FDA-Public Use
  Company Number: US-MERCK-1404USA001084

PATIENT
  Age: 50 Year
  Sex: Female
  Weight: 57.6 kg

DRUGS (17)
  1. PEGINTRON [Suspect]
     Active Substance: PEGINTERFERON ALFA-2B
     Dosage: 80 MICROGRAM, QW
     Route: 058
     Dates: start: 20131129, end: 20140516
  2. CALCIUM (UNSPECIFIED) (+) VITAMIN D (UNSPECIFIED) [Concomitant]
     Active Substance: CALCIUM CARBONATE\VITAMIN D
     Dosage: 1 TAB BID
     Route: 048
     Dates: start: 20130829
  3. VICTRELIS [Suspect]
     Active Substance: BOCEPREVIR
     Dosage: TAKE 4 CAPSULES TID
     Route: 048
     Dates: start: 20131031
  4. VICTRELIS [Suspect]
     Active Substance: BOCEPREVIR
     Dosage: UNK
     Route: 048
     Dates: start: 201312
  5. ASPIRIN. [Concomitant]
     Active Substance: ASPIRIN
     Dosage: 81 MG, QD
     Route: 048
     Dates: start: 20130829
  6. MYRBETRIQ [Concomitant]
     Active Substance: MIRABEGRON
     Dosage: 25 MG, QD
     Route: 048
     Dates: start: 20130329
  7. RANITIDINE HYDROCHLORIDE. [Concomitant]
     Active Substance: RANITIDINE HYDROCHLORIDE
     Dosage: 150 MG, QD
     Route: 048
     Dates: start: 20130330
  8. RIBAVIRIN. [Suspect]
     Active Substance: RIBAVIRIN
     Dosage: 200MG CAP, 2 BID
     Route: 048
     Dates: start: 20130927, end: 20131129
  9. DIPHENHYDRAMINE HYDROCHLORIDE. [Concomitant]
     Active Substance: DIPHENHYDRAMINE HYDROCHLORIDE
     Dosage: 50 MG, HS
     Route: 048
     Dates: start: 20130716
  10. EVISTA [Concomitant]
     Active Substance: RALOXIFENE HYDROCHLORIDE
     Dosage: 60 MG, QD
     Route: 048
     Dates: start: 20130718
  11. LORATADINE. [Concomitant]
     Active Substance: LORATADINE
     Dosage: 10 MG, QD
     Dates: start: 20130718
  12. ATORVASTATIN CALCIUM. [Concomitant]
     Active Substance: ATORVASTATIN CALCIUM
     Dosage: 20 MG, QD
     Route: 048
  13. LEVOTHYROXINE SODIUM. [Concomitant]
     Active Substance: LEVOTHYROXINE SODIUM
     Dosage: 25 MICROGRAM, QD
     Route: 048
     Dates: start: 20130316
  14. PEGINTRON [Suspect]
     Active Substance: PEGINTERFERON ALFA-2B
     Indication: HEPATITIS C
     Dosage: 80 MICROGRAM/0.5 ML
     Route: 058
     Dates: start: 20130927, end: 20131112
  15. RIBAVIRIN. [Suspect]
     Active Substance: RIBAVIRIN
     Dosage: 400 MG, BID
     Dates: start: 20131129, end: 20140515
  16. SOFTENE [Concomitant]
     Active Substance: BISACODYL\DOCUSATE SODIUM
     Dosage: 100 MG, QD
     Dates: start: 20130829
  17. OMEPRAZOLE. [Concomitant]
     Active Substance: OMEPRAZOLE
     Dosage: 20 MG, BID
     Route: 048
     Dates: start: 20130829

REACTIONS (21)
  - Acute hepatitis C [Unknown]
  - Neutropenia [Unknown]
  - Lymphocytosis [Unknown]
  - Impaired gastric emptying [Unknown]
  - Depression [Unknown]
  - Rectal haemorrhage [Recovered/Resolved]
  - Insomnia [Unknown]
  - Suicidal ideation [Recovered/Resolved]
  - Injection site warmth [Recovering/Resolving]
  - Agitation [Unknown]
  - Weight decreased [Unknown]
  - Anaemia [Unknown]
  - Hyperlipidaemia [Unknown]
  - Transaminases increased [Unknown]
  - Hyperhidrosis [Recovering/Resolving]
  - Abdominal discomfort [Recovering/Resolving]
  - Nausea [Unknown]
  - Gastrooesophageal reflux disease [Unknown]
  - Oropharyngeal pain [Unknown]
  - Memory impairment [Recovering/Resolving]
  - Product quality issue [Unknown]

NARRATIVE: CASE EVENT DATE: 201310
